FAERS Safety Report 15567635 (Version 13)
Quarter: 2019Q3

REPORT INFORMATION
  Report Type: Report from Study
  Country: CO (occurrence: CO)
  Receive Date: 20181030
  Receipt Date: 20190927
  Transmission Date: 20191004
  Serious: Yes (Hospitalization)
  Sender: FDA-Public Use
  Company Number: CO-SA-2018SA283177

PATIENT
  Age: 41 Year
  Sex: Female

DRUGS (1)
  1. ALEMTUZUMAB [Suspect]
     Active Substance: ALEMTUZUMAB
     Indication: MULTIPLE SCLEROSIS
     Dosage: UNK, QD
     Route: 041
     Dates: start: 20180921, end: 20180925

REACTIONS (19)
  - Abdominal pain [Unknown]
  - Urobilinogen urine [Recovered/Resolved]
  - Mean cell volume decreased [Not Recovered/Not Resolved]
  - White blood cell count decreased [Recovered/Resolved]
  - Haematuria [Recovered/Resolved]
  - Red blood cell sedimentation rate increased [Not Recovered/Not Resolved]
  - Nitrite urine present [Recovered/Resolved]
  - Red blood cell count decreased [Recovered/Resolved]
  - Constipation [Unknown]
  - Vomiting [Unknown]
  - Haemoglobin decreased [Not Recovered/Not Resolved]
  - Lymphocyte count decreased [Recovered/Resolved]
  - Leukocyturia [Unknown]
  - Monocyte count increased [Recovered/Resolved]
  - Mean cell haemoglobin decreased [Not Recovered/Not Resolved]
  - Platelet count decreased [Recovered/Resolved]
  - Mean cell haemoglobin concentration decreased [Not Recovered/Not Resolved]
  - Bacterial test positive [Unknown]
  - Haematocrit decreased [Recovered/Resolved]

NARRATIVE: CASE EVENT DATE: 20181006
